FAERS Safety Report 10524165 (Version 2)
Quarter: 2014Q4

REPORT INFORMATION
  Report Type: Report from Study
  Country: US (occurrence: US)
  Receive Date: 20141017
  Receipt Date: 20141017
  Transmission Date: 20150528
  Serious: Yes (Hospitalization, Other)
  Sender: FDA-Public Use
  Company Number: US-JNJFOC-20141003065

PATIENT
  Age: 86 Year
  Sex: Female

DRUGS (4)
  1. ALLOPURINOL. [Concomitant]
     Active Substance: ALLOPURINOL
     Indication: GOUT
  2. PROTONIX [Concomitant]
     Active Substance: PANTOPRAZOLE SODIUM
     Indication: GASTROOESOPHAGEAL REFLUX DISEASE
  3. IMBRUVICA [Suspect]
     Active Substance: IBRUTINIB
     Indication: CHRONIC LYMPHOCYTIC LEUKAEMIA
     Route: 048
     Dates: start: 20140625, end: 2014
  4. COZAAR [Concomitant]
     Active Substance: LOSARTAN POTASSIUM
     Indication: HYPERTENSION

REACTIONS (8)
  - Haemorrhagic anaemia [Recovering/Resolving]
  - Fall [Unknown]
  - Contusion [Unknown]
  - Post procedural haemorrhage [Recovering/Resolving]
  - Haematoma [Unknown]
  - Leukocytosis [Recovering/Resolving]
  - Femur fracture [Unknown]
  - Dehydration [Unknown]

NARRATIVE: CASE EVENT DATE: 2014
